FAERS Safety Report 4856178-9 (Version None)
Quarter: 2005Q4

REPORT INFORMATION
  Report Type: 
  Country: None (occurrence: None)
  Receive Date: 20051216
  Receipt Date: 20051206
  Transmission Date: 20060501
  Serious: Yes (Other)
  Sender: FDA-Public Use
  Company Number: US-MERCK-0512USA00860

PATIENT
  Sex: Female

DRUGS (1)
  1. VIOXX [Suspect]
     Route: 048
     Dates: start: 19990101, end: 20040901

REACTIONS (6)
  - CARDIOVASCULAR DISORDER [None]
  - CEREBROVASCULAR ACCIDENT [None]
  - HEPATIC TRAUMA [None]
  - MYOCARDIAL INFARCTION [None]
  - PULMONARY EMBOLISM [None]
  - RENAL INJURY [None]
